FAERS Safety Report 9645166 (Version 1)
Quarter: 2013Q4

REPORT INFORMATION
  Report Type: Spontaneous
  Country: US (occurrence: None)
  Receive Date: 20131023
  Receipt Date: 20131023
  Transmission Date: 20140711
  Serious: Yes (Life-Threatening, Hospitalization)
  Sender: FDA-Public Use
  Company Number: None

PATIENT
  Age: 85 Year
  Sex: Female
  Weight: 55.3 kg

DRUGS (16)
  1. WARFARIN [Suspect]
     Indication: DEEP VEIN THROMBOSIS
     Dosage: ON SUND/WEDNESDAY
     Route: 048
     Dates: start: 20130811, end: 20131011
  2. WARFARIN [Suspect]
     Indication: PULMONARY EMBOLISM
     Dosage: ON SUND/WEDNESDAY
     Route: 048
     Dates: start: 20130811, end: 20131011
  3. WARFARIN [Suspect]
     Indication: DEEP VEIN THROMBOSIS
     Dosage: MON/TUES/THURS/FRI/SAT
     Route: 048
     Dates: start: 20130811, end: 20131011
  4. WARFARIN [Suspect]
     Indication: PULMONARY EMBOLISM
     Dosage: MON/TUES/THURS/FRI/SAT
     Route: 048
     Dates: start: 20130811, end: 20131011
  5. ASA [Concomitant]
  6. CALCIUM CARBONATE [Concomitant]
  7. KEFLEX [Concomitant]
  8. VIT D3 [Concomitant]
  9. CRANBERRY EXTRACT [Concomitant]
  10. CARDIZEM [Concomitant]
  11. ALLEGRA [Concomitant]
  12. BONIVA [Concomitant]
  13. ARAVA [Concomitant]
  14. OMEPRAZOLE [Concomitant]
  15. DITROPAN XL [Concomitant]
  16. D-DUR [Concomitant]

REACTIONS (4)
  - Hypoxia [None]
  - Pneumonia [None]
  - Cellulitis [None]
  - International normalised ratio increased [None]
